FAERS Safety Report 13333975 (Version 1)
Quarter: 2017Q1

REPORT INFORMATION
  Report Type: Spontaneous
  Country: PK (occurrence: PK)
  Receive Date: 20170313
  Receipt Date: 20170313
  Transmission Date: 20170428
  Serious: Yes (Other)
  Sender: FDA-Public Use
  Company Number: PK-BAUSCH-BL-2017-006437

PATIENT
  Age: 40 Year
  Sex: Male

DRUGS (1)
  1. PREDNISOLONE. [Suspect]
     Active Substance: PREDNISOLONE
     Indication: FOCAL SEGMENTAL GLOMERULOSCLEROSIS
     Route: 048

REACTIONS (2)
  - Pleural effusion [Recovered/Resolved]
  - Nocardiosis [Recovering/Resolving]
